FAERS Safety Report 5876431-X (Version None)
Quarter: 2008Q3

REPORT INFORMATION
  Report Type: 
  Country: None (occurrence: None)
  Receive Date: 20080908
  Receipt Date: 20080908
  Transmission Date: 20090109
  Serious: No
  Sender: FDA-Public Use
  Company Number: None

PATIENT
  Age: 61 Year
  Sex: Female

DRUGS (1)
  1. LEVAQUIN [Suspect]
     Indication: SINUSITIS
     Dosage: 1 ONCE AAY PO
     Route: 048
     Dates: start: 20080812, end: 20080828

REACTIONS (4)
  - ARTHRALGIA [None]
  - DEPRESSED MOOD [None]
  - PAIN [None]
  - PAIN IN EXTREMITY [None]
